FAERS Safety Report 7085299-8 (Version None)
Quarter: 2010Q4

REPORT INFORMATION
  Report Type: 
  Country: None (occurrence: None)
  Receive Date: 20101105
  Receipt Date: 20101026
  Transmission Date: 20110411
  Serious: Yes (Other)
  Sender: FDA-Public Use
  Company Number: US-PFIZER INC-2010132434

PATIENT
  Sex: Male

DRUGS (8)
  1. LYRICA [Suspect]
     Indication: FIBROMYALGIA
     Dosage: 150 MG, 2X/DAY
  2. LYRICA [Suspect]
     Indication: INTERVERTEBRAL DISC DEGENERATION
  3. OXYCONTIN [Concomitant]
     Dosage: UNK
  4. FENTANYL [Concomitant]
     Dosage: UNK
  5. METHADONE [Concomitant]
     Dosage: UNK
  6. ANDROGEL [Concomitant]
     Indication: ANDROGEN DEFICIENCY
     Dosage: UNK
  7. MEGACE [Concomitant]
     Indication: DECREASED APPETITE
     Dosage: UNK
  8. ADDERALL 10 [Concomitant]
     Dosage: UNK

REACTIONS (7)
  - AMNESIA [None]
  - CONFUSIONAL STATE [None]
  - DISSOCIATIVE DISORDER [None]
  - DRUG INEFFECTIVE [None]
  - FEELING ABNORMAL [None]
  - HALLUCINATION [None]
  - HYPERTONIA [None]
